FAERS Safety Report 21392506 (Version 2)
Quarter: 2022Q4

REPORT INFORMATION
  Report Type: Spontaneous
  Country: US (occurrence: US)
  Receive Date: 20220929
  Receipt Date: 20221014
  Transmission Date: 20230113
  Serious: Yes (Death)
  Sender: FDA-Public Use
  Company Number: US-TEVA-2022-US-2076290

PATIENT

DRUGS (4)
  1. PREDNISONE [Suspect]
     Active Substance: PREDNISONE
     Indication: Post transplant lymphoproliferative disorder
     Dosage: PART OF R-COP REGIMEN
     Route: 065
  2. VINCRISTINE [Suspect]
     Active Substance: VINCRISTINE
     Indication: Post transplant lymphoproliferative disorder
     Dosage: PART OF R-COP REGIMEN
     Route: 065
  3. CYCLOPHOSPHAMIDE [Suspect]
     Active Substance: CYCLOPHOSPHAMIDE
     Indication: Post transplant lymphoproliferative disorder
     Dosage: PART OF R-COP REGIMEN
     Route: 065
  4. RITUXIMAB [Suspect]
     Active Substance: RITUXIMAB
     Indication: Post transplant lymphoproliferative disorder
     Dosage: PART OF R COP REGIMEN
     Route: 065

REACTIONS (1)
  - Drug ineffective [Fatal]
